FAERS Safety Report 21957638 (Version 1)
Quarter: 2023Q1

REPORT INFORMATION
  Report Type: Spontaneous
  Country: CN (occurrence: CN)
  Receive Date: 20230206
  Receipt Date: 20230206
  Transmission Date: 20230418
  Serious: Yes (Hospitalization, Other)
  Sender: FDA-Public Use
  Company Number: CN-PFIZER INC-PV202300020271

PATIENT
  Age: 10 Year
  Sex: Male
  Weight: 19 kg

DRUGS (5)
  1. CYTARABINE [Suspect]
     Active Substance: CYTARABINE
     Dosage: 165 MG, 1X/DAY
     Route: 041
     Dates: start: 20230101, end: 20230101
  2. METHOTREXATE SODIUM [Suspect]
     Active Substance: METHOTREXATE SODIUM
     Dosage: 5 G, 1X/DAY
     Route: 041
     Dates: start: 20221226, end: 20221227
  3. ETOPOSIDE [Suspect]
     Active Substance: ETOPOSIDE
     Indication: Sepsis
     Dosage: 110 MG, 1X/DAY
     Route: 041
     Dates: start: 20230101, end: 20230101
  4. IFOSFAMIDE [Suspect]
     Active Substance: IFOSFAMIDE
     Indication: Sepsis
     Dosage: 0.88 G, 1X/DAY
     Route: 041
     Dates: start: 20221226, end: 20221230
  5. CYCLOPHOSPHAMIDE [Suspect]
     Active Substance: CYCLOPHOSPHAMIDE
     Indication: Sepsis
     Dosage: 0.22 G, 1X/DAY
     Route: 041
     Dates: start: 20221222, end: 20221223

REACTIONS (2)
  - Myelosuppression [Recovering/Resolving]
  - Epistaxis [Recovering/Resolving]

NARRATIVE: CASE EVENT DATE: 20230105
